FAERS Safety Report 11835713 (Version 1)
Quarter: 2015Q4

REPORT INFORMATION
  Report Type: Spontaneous
  Country: US (occurrence: None)
  Receive Date: 20151214
  Receipt Date: 20151214
  Transmission Date: 20160305
  Serious: Yes (Hospitalization)
  Sender: FDA-Public Use
  Company Number: None

PATIENT
  Age: 40 Year
  Sex: Male
  Weight: 86.18 kg

DRUGS (2)
  1. PREDNISONE. [Concomitant]
     Active Substance: PREDNISONE
  2. ENTYVIO [Suspect]
     Active Substance: VEDOLIZUMAB
     Indication: COLITIS ULCERATIVE
     Dosage: EVERY 8 WEEKS
     Route: 042
     Dates: start: 20151113

REACTIONS (9)
  - Fatigue [None]
  - Bedridden [None]
  - Nausea [None]
  - Pyrexia [None]
  - Encephalitis [None]
  - Neck pain [None]
  - Headache [None]
  - Middle insomnia [None]
  - Meningitis aseptic [None]

NARRATIVE: CASE EVENT DATE: 20151117
